FAERS Safety Report 21609874 (Version 1)
Quarter: 2022Q4

REPORT INFORMATION
  Report Type: Spontaneous
  Country: IN (occurrence: None)
  Receive Date: 20221117
  Receipt Date: 20221117
  Transmission Date: 20230112
  Serious: Yes (Hospitalization)
  Sender: FDA-Public Use
  Company Number: IN-Merck Healthcare KGaA-9365683

PATIENT
  Age: 61 Year
  Sex: Male
  Weight: 65 kg

DRUGS (5)
  1. BAVENCIO [Suspect]
     Active Substance: AVELUMAB
     Indication: Metastatic renal cell carcinoma
     Dates: start: 202201
  2. INLYTA [Suspect]
     Active Substance: AXITINIB
     Indication: Metastatic renal cell carcinoma
     Route: 048
     Dates: start: 20220127
  3. INLYTA [Suspect]
     Active Substance: AXITINIB
     Dosage: 3 MG IN THE MORNING AND 2 MG IN THE NIGHT FOR TWO TO FOUR WEEKS
     Route: 048
     Dates: start: 20220428
  4. INLYTA [Suspect]
     Active Substance: AXITINIB
     Dosage: 5 MG 1-0-1 AND 1 MG 3-0-2 ON ALTERNATE DAYS X 4 MONTHS)
     Route: 048
  5. INLYTA [Suspect]
     Active Substance: AXITINIB
     Route: 048

REACTIONS (7)
  - Gastrointestinal pain [Not Recovered/Not Resolved]
  - Throat irritation [Not Recovered/Not Resolved]
  - Ageusia [Not Recovered/Not Resolved]
  - Dyspepsia [Not Recovered/Not Resolved]
  - Diarrhoea [Not Recovered/Not Resolved]
  - Skin exfoliation [Not Recovered/Not Resolved]
  - Aphonia [Not Recovered/Not Resolved]
